FAERS Safety Report 10075510 (Version 1)
Quarter: 2014Q2

REPORT INFORMATION
  Report Type: Spontaneous
  Country: SE (occurrence: SE)
  Receive Date: 20140414
  Receipt Date: 20140414
  Transmission Date: 20141212
  Serious: Yes (Other)
  Sender: FDA-Public Use
  Company Number: SE-JNJFOC-20140406342

PATIENT
  Age: 43 Year
  Sex: Female

DRUGS (2)
  1. REMICADE [Suspect]
     Indication: INFLAMMATION
     Route: 042
     Dates: start: 20001008, end: 20001219
  2. PREDNISOLONE [Concomitant]
     Route: 065
     Dates: start: 20001128, end: 20070109

REACTIONS (5)
  - Chills [Recovered/Resolved]
  - Nausea [Recovered/Resolved]
  - Chest discomfort [Recovered/Resolved]
  - Dyspnoea [Recovered/Resolved]
  - Flushing [Recovered/Resolved]
